FAERS Safety Report 7912621-X (Version None)
Quarter: 2011Q4

REPORT INFORMATION
  Report Type: 
  Country: None (occurrence: None)
  Receive Date: 20111114
  Receipt Date: 20111108
  Transmission Date: 20120403
  Serious: Yes (Hospitalization)
  Sender: FDA-Public Use
  Company Number: IT-PFIZER INC-2011273845

PATIENT
  Age: 60 Year
  Sex: Male

DRUGS (2)
  1. SUTENT [Suspect]
     Indication: RENAL CELL CARCINOMA
     Dosage: 37.5 MG, UNK
     Dates: start: 20100101
  2. LEVOTHYROXINE SODIUM [Suspect]
     Indication: HYPOTHYROIDISM

REACTIONS (7)
  - BLOOD FIBRINOGEN DECREASED [None]
  - TRANSAMINASES DECREASED [None]
  - PERICARDIAL FIBROSIS [None]
  - CARDIAC FAILURE [None]
  - LEUKOPENIA [None]
  - BLOOD PRESSURE INCREASED [None]
  - THROMBOCYTOPENIA [None]
